FAERS Safety Report 25748392 (Version 1)
Quarter: 2025Q3

REPORT INFORMATION
  Report Type: Spontaneous
  Country: JP (occurrence: JP)
  Receive Date: 20250902
  Receipt Date: 20250902
  Transmission Date: 20251020
  Serious: Yes (Hospitalization)
  Sender: TAKEDA
  Company Number: JP-TAKEDA-2025TJP008759

PATIENT
  Age: 6 Year
  Sex: Male
  Weight: 15 kg

DRUGS (1)
  1. INTUNIV [Suspect]
     Active Substance: GUANFACINE HYDROCHLORIDE
     Indication: Accidental exposure to product by child

REACTIONS (4)
  - Toxicity to various agents [Recovering/Resolving]
  - Somnolence [Unknown]
  - Bradycardia [Recovering/Resolving]
  - Accidental exposure to product by child [Unknown]
